FAERS Safety Report 10981956 (Version 2)
Quarter: 2015Q2

REPORT INFORMATION
  Report Type: Spontaneous
  Country: US (occurrence: US)
  Receive Date: 20150402
  Receipt Date: 20150429
  Transmission Date: 20150821
  Serious: Yes (Other)
  Sender: FDA-Public Use
  Company Number: US-ROCHE-1559537

PATIENT
  Age: 59 Year
  Sex: Female

DRUGS (5)
  1. SINGULAIR [Concomitant]
     Active Substance: MONTELUKAST SODIUM
     Route: 048
     Dates: start: 2013
  2. FLONASE (UNITED STATES) [Concomitant]
     Dosage: DOSE: 2 SPRAYS
     Route: 045
  3. XOLAIR [Suspect]
     Active Substance: OMALIZUMAB
     Indication: ASTHMA
     Route: 058
  4. ALBUTEROL. [Concomitant]
     Active Substance: ALBUTEROL
     Dosage: DOSE: 2 INHALATION OF 4-6 AS REQUIRED
     Route: 048
  5. ZYRTEC [Concomitant]
     Active Substance: CETIRIZINE HYDROCHLORIDE
     Route: 048

REACTIONS (2)
  - Chest discomfort [Recovered/Resolved]
  - Anaphylactic reaction [Unknown]
